FAERS Safety Report 11188757 (Version 36)
Quarter: 2018Q1

REPORT INFORMATION
  Report Type: Spontaneous
  Country: CA (occurrence: CA)
  Receive Date: 20150615
  Receipt Date: 20180315
  Transmission Date: 20180508
  Serious: Yes (Hospitalization, Other)
  Sender: FDA-Public Use
  Company Number: CA-ROCHE-1594032

PATIENT
  Age: 72 Year
  Sex: Female

DRUGS (24)
  1. XOLAIR [Suspect]
     Active Substance: OMALIZUMAB
     Route: 058
     Dates: start: 20160602
  2. XOLAIR [Suspect]
     Active Substance: OMALIZUMAB
     Route: 058
     Dates: start: 20160923
  3. XOLAIR [Suspect]
     Active Substance: OMALIZUMAB
     Route: 058
     Dates: start: 20161219
  4. XOLAIR [Suspect]
     Active Substance: OMALIZUMAB
     Route: 058
     Dates: start: 20161219
  5. XOLAIR [Suspect]
     Active Substance: OMALIZUMAB
     Route: 058
     Dates: start: 20180212
  6. XOLAIR [Suspect]
     Active Substance: OMALIZUMAB
     Route: 058
     Dates: start: 20170210
  7. XOLAIR [Suspect]
     Active Substance: OMALIZUMAB
     Route: 058
     Dates: start: 20171206
  8. XOLAIR [Suspect]
     Active Substance: OMALIZUMAB
     Route: 058
     Dates: start: 20170602, end: 20170602
  9. ADVAIR HFA [Concomitant]
     Active Substance: FLUTICASONE PROPIONATE\SALMETEROL XINAFOATE
     Indication: ASTHMA
     Dosage: 500 UG, QD
     Route: 055
  10. XOLAIR [Suspect]
     Active Substance: OMALIZUMAB
     Route: 058
     Dates: start: 20151016
  11. XOLAIR [Suspect]
     Active Substance: OMALIZUMAB
     Route: 058
     Dates: start: 20160304
  12. XOLAIR [Suspect]
     Active Substance: OMALIZUMAB
     Route: 058
     Dates: start: 20160629
  13. XOLAIR [Suspect]
     Active Substance: OMALIZUMAB
     Route: 058
     Dates: start: 20171006
  14. XOLAIR [Suspect]
     Active Substance: OMALIZUMAB
     Route: 058
     Dates: start: 20150507
  15. XOLAIR [Suspect]
     Active Substance: OMALIZUMAB
     Route: 058
     Dates: start: 20150820
  16. XOLAIR [Suspect]
     Active Substance: OMALIZUMAB
     Route: 058
     Dates: start: 20161024
  17. ADVAIR HFA [Concomitant]
     Active Substance: FLUTICASONE PROPIONATE\SALMETEROL XINAFOATE
     Dosage: 250 UG, QD
     Route: 055
     Dates: start: 201511
  18. AVAMYS [Concomitant]
     Active Substance: FLUTICASONE FUROATE
     Indication: PRODUCT USED FOR UNKNOWN INDICATION
     Dosage: UNK
     Route: 065
  19. XOLAIR [Suspect]
     Active Substance: OMALIZUMAB
     Indication: ASTHMA
     Route: 058
     Dates: start: 20150312
  20. ADVAIR HFA [Concomitant]
     Active Substance: FLUTICASONE PROPIONATE\SALMETEROL XINAFOATE
     Route: 055
     Dates: start: 201608
  21. OMNARIS [Concomitant]
     Active Substance: CICLESONIDE
     Indication: PRODUCT USED FOR UNKNOWN INDICATION
     Route: 065
  22. XOLAIR [Suspect]
     Active Substance: OMALIZUMAB
     Route: 058
     Dates: start: 20150708
  23. XOLAIR [Suspect]
     Active Substance: OMALIZUMAB
     Route: 058
     Dates: start: 20170313
  24. VENTOLIN [Concomitant]
     Active Substance: ALBUTEROL SULFATE
     Indication: ASTHMA
     Dosage: PRN
     Route: 065

REACTIONS (49)
  - Blood pressure increased [Unknown]
  - Dry mouth [Unknown]
  - Nasopharyngitis [Recovering/Resolving]
  - Pain [Not Recovered/Not Resolved]
  - Eye pain [Unknown]
  - Ear infection [Unknown]
  - Injection site pain [Recovered/Resolved]
  - Injection site pruritus [Recovered/Resolved]
  - Influenza [Unknown]
  - Malaise [Recovering/Resolving]
  - Peak expiratory flow rate decreased [Unknown]
  - Injection site erythema [Not Recovered/Not Resolved]
  - Alopecia [Recovered/Resolved]
  - Wheezing [Unknown]
  - Asthenia [Unknown]
  - Headache [Recovering/Resolving]
  - Blood count abnormal [Unknown]
  - Sneezing [Unknown]
  - Oropharyngeal pain [Unknown]
  - Pneumonia [Unknown]
  - Nocturnal dyspnoea [Unknown]
  - Cystitis [Unknown]
  - Vision blurred [Unknown]
  - Feeling abnormal [Unknown]
  - Breast cancer [Unknown]
  - Nasal congestion [Unknown]
  - Asthma [Unknown]
  - Hypersensitivity [Unknown]
  - Bronchitis [Unknown]
  - Fall [Unknown]
  - Infection [Not Recovered/Not Resolved]
  - Toothache [Unknown]
  - Vomiting [Unknown]
  - Anaemia [Recovering/Resolving]
  - Chills [Unknown]
  - Immunodeficiency [Unknown]
  - Muscle spasms [Unknown]
  - Pyrexia [Unknown]
  - Aphonia [Unknown]
  - Oral pain [Unknown]
  - Chest discomfort [Unknown]
  - Oral candidiasis [Recovered/Resolved]
  - Acute sinusitis [Unknown]
  - Rib fracture [Unknown]
  - Injection site bruising [Unknown]
  - Sputum discoloured [Unknown]
  - Injection site rash [Recovered/Resolved]
  - Breast pain [Unknown]
  - Rhinorrhoea [Unknown]

NARRATIVE: CASE EVENT DATE: 20150312
